FAERS Safety Report 5712420-3 (Version None)
Quarter: 2008Q2

REPORT INFORMATION
  Report Type: 
  Country: None (occurrence: None)
  Receive Date: 20080422
  Receipt Date: 20080411
  Transmission Date: 20081010
  Serious: Yes (Other)
  Sender: FDA-Public Use
  Company Number: PHHY2008JP05507

PATIENT
  Sex: Male

DRUGS (1)
  1. NEORAL [Suspect]
     Indication: DEMYELINATING POLYNEUROPATHY
     Route: 048
     Dates: end: 20080308

REACTIONS (3)
  - HYPONATRAEMIA [None]
  - POLYURIA [None]
  - URINE OUTPUT INCREASED [None]
